FAERS Safety Report 18628829 (Version 4)
Quarter: 2021Q2

REPORT INFORMATION
  Report Type: Report from Study
  Country: BR (occurrence: BR)
  Receive Date: 20201217
  Receipt Date: 20210630
  Transmission Date: 20210717
  Serious: Yes (Hospitalization, Other)
  Sender: FDA-Public Use
  Company Number: NVSC2020BR334533

PATIENT
  Age: 29 Year
  Sex: Male
  Weight: 86 kg

DRUGS (3)
  1. COSENTYX [Suspect]
     Active Substance: SECUKINUMAB
     Indication: ANKYLOSING SPONDYLITIS
     Dosage: 2 PENS QW
     Route: 058
     Dates: start: 202009
  2. COSENTYX [Suspect]
     Active Substance: SECUKINUMAB
     Dosage: 2 PENS QMO
     Route: 058
     Dates: end: 202012
  3. COSENTYX [Suspect]
     Active Substance: SECUKINUMAB
     Dosage: 2 PENS QMO
     Route: 058
     Dates: end: 202101

REACTIONS (9)
  - Ankylosing spondylitis [Not Recovered/Not Resolved]
  - Intestinal haemorrhage [Recovered/Resolved]
  - Drug ineffective [Unknown]
  - Hypokinesia [Not Recovered/Not Resolved]
  - Therapeutic product effect delayed [Unknown]
  - Malaise [Not Recovered/Not Resolved]
  - Monoplegia [Not Recovered/Not Resolved]
  - Hepatic function abnormal [Not Recovered/Not Resolved]
  - Therapy non-responder [Unknown]

NARRATIVE: CASE EVENT DATE: 202009
